FAERS Safety Report 7656976-2 (Version None)
Quarter: 2011Q3

REPORT INFORMATION
  Report Type: 
  Country: None (occurrence: None)
  Receive Date: 20110804
  Receipt Date: 20110803
  Transmission Date: 20111222
  Serious: Yes (Life-Threatening, Other)
  Sender: FDA-Public Use
  Company Number: JP-ABBOTT-11P-087-0840514-00

PATIENT
  Sex: Female

DRUGS (28)
  1. CLARITHROMYCIN [Suspect]
     Indication: PHARYNGITIS
     Route: 048
     Dates: start: 20110701, end: 20110701
  2. CLARITHROMYCIN [Suspect]
     Indication: SINUSITIS
  3. CLINDAMYCIN [Suspect]
     Indication: PHARYNGITIS
     Route: 042
     Dates: start: 20110701, end: 20110701
  4. LANSOPRAZOLE [Concomitant]
     Indication: SINUSITIS
  5. ALLEGRA [Concomitant]
     Indication: SINUSITIS
  6. DEXTROMETHORPHAN HYDROBROMIDE HYDRATE [Concomitant]
     Indication: PHARYNGITIS
  7. ALLEGRA [Concomitant]
     Indication: HEADACHE
  8. MONTELUKAST SODIUM [Concomitant]
     Indication: SINUSITIS
  9. LANSOPRAZOLE [Concomitant]
     Indication: PHARYNGITIS
     Route: 048
     Dates: start: 20110701, end: 20110701
  10. LANSOPRAZOLE [Concomitant]
     Indication: HEADACHE
  11. MONTELUKAST SODIUM [Concomitant]
     Indication: HEADACHE
  12. CLINDAMYCIN [Suspect]
     Indication: PYREXIA
  13. CLINDAMYCIN [Suspect]
     Indication: HEADACHE
  14. LANSOPRAZOLE [Concomitant]
     Indication: PYREXIA
  15. ALLEGRA [Concomitant]
     Indication: PYREXIA
  16. ISEPACIN [Concomitant]
     Indication: PHARYNGITIS
     Route: 042
     Dates: start: 20110701, end: 20110701
  17. CLARITHROMYCIN [Suspect]
     Indication: PYREXIA
  18. ALLEGRA [Concomitant]
     Indication: PHARYNGITIS
     Route: 048
     Dates: start: 20110701, end: 20110701
  19. MONTELUKAST SODIUM [Concomitant]
     Indication: PHARYNGITIS
     Route: 048
     Dates: start: 20110701, end: 20110701
  20. MONTELUKAST SODIUM [Concomitant]
     Indication: PYREXIA
  21. ISEPACIN [Concomitant]
     Indication: PYREXIA
  22. CLARITHROMYCIN [Suspect]
     Indication: HEADACHE
  23. ISEPACIN [Concomitant]
     Indication: SINUSITIS
  24. DEXTROMETHORPHAN HYDROBROMIDE HYDRATE [Concomitant]
     Indication: PYREXIA
     Route: 048
     Dates: start: 20110701, end: 20110701
  25. CLINDAMYCIN [Suspect]
     Indication: SINUSITIS
  26. ISEPACIN [Concomitant]
     Indication: HEADACHE
  27. DEXTROMETHORPHAN HYDROBROMIDE HYDRATE [Concomitant]
     Indication: HEADACHE
  28. DEXTROMETHORPHAN HYDROBROMIDE HYDRATE [Concomitant]
     Indication: SINUSITIS

REACTIONS (5)
  - EAR DISCOMFORT [None]
  - GENERALISED ERYTHEMA [None]
  - DYSPNOEA [None]
  - COUGH [None]
  - PYREXIA [None]
